FAERS Safety Report 6279465-9 (Version None)
Quarter: 2009Q3

REPORT INFORMATION
  Report Type: 
  Country: None (occurrence: None)
  Receive Date: 20090723
  Receipt Date: 20090713
  Transmission Date: 20100115
  Serious: Yes (Other)
  Sender: FDA-Public Use
  Company Number: US-ABBOTT-09P-163-0585335-00

PATIENT
  Age: 68 Year
  Sex: Female
  Weight: 62.652 kg

DRUGS (4)
  1. SYNTHROID [Interacting]
     Indication: HORMONE REPLACEMENT THERAPY
  2. SYNTHROID [Interacting]
  3. DILANTIN [Interacting]
     Indication: CONVULSION
     Dosage: 2 OR 3 TIMES DAILY
  4. PRIMIDONE [Suspect]
     Indication: CONVULSION
     Dates: end: 20090622

REACTIONS (4)
  - CONVULSION [None]
  - DRUG INTERACTION [None]
  - TREMOR [None]
  - WEIGHT INCREASED [None]
